FAERS Safety Report 6463883-X (Version None)
Quarter: 2009Q4

REPORT INFORMATION
  Report Type: 
  Country: None (occurrence: None)
  Receive Date: 20091201
  Receipt Date: 20091120
  Transmission Date: 20100525
  Serious: Yes (Other)
  Sender: FDA-Public Use
  Company Number: SE-ROCHE-670041

PATIENT
  Age: 48 Year
  Sex: Male

DRUGS (2)
  1. PEGASYS [Suspect]
     Indication: HEPATITIS
     Dosage: REPORTED: PEGASYS SOLUTION FOR INJECTION 180UG/ML. DOSE: 180 RGW.
     Route: 065
     Dates: start: 20071024, end: 20080417
  2. COPEGUS [Suspect]
     Indication: HEPATITIS
     Dosage: REPORTED AS COPEGUS FILM COATED TABLET 200MG. DOSE: 1 GMD. ROUTE REPORTED AS PER ORAL (PO).
     Route: 048
     Dates: start: 20071024, end: 20080417

REACTIONS (2)
  - INTERSTITIAL LUNG DISEASE [None]
  - OPTIC NEURITIS [None]
